FAERS Safety Report 5034422-5 (Version None)
Quarter: 2006Q2

REPORT INFORMATION
  Report Type: 
  Country: None (occurrence: None)
  Receive Date: 20060620
  Receipt Date: 20060602
  Transmission Date: 20061013
  Serious: Yes (Hospitalization)
  Sender: FDA-Public Use
  Company Number: IN200606001359

PATIENT
  Age: 60 Year
  Sex: Male

DRUGS (1)
  1. GEMCITABINE (GEMCITABINE HYDROCHLORIDE UNKNOWN FORMULATION) UNKNOWN [Suspect]
     Indication: NON-SMALL CELL LUNG CANCER
     Dosage: 1.6 G, INTRAVENOUS
     Route: 042

REACTIONS (1)
  - DEEP VEIN THROMBOSIS [None]
